FAERS Safety Report 19998670 (Version 2)
Quarter: 2021Q4

REPORT INFORMATION
  Report Type: Spontaneous
  Country: US (occurrence: US)
  Receive Date: 20211027
  Receipt Date: 20211026
  Transmission Date: 20220303
  Serious: No
  Sender: FDA-Public Use
  Company Number: US-ROCHE-2675055

PATIENT
  Sex: Female

DRUGS (1)
  1. COTELLIC [Suspect]
     Active Substance: COBIMETINIB
     Indication: Malignant melanoma
     Route: 048
     Dates: start: 20200628

REACTIONS (3)
  - Nausea [Unknown]
  - Balance disorder [Unknown]
  - Disorientation [Unknown]
